FAERS Safety Report 14924588 (Version 2)
Quarter: 2018Q2

REPORT INFORMATION
  Report Type: Spontaneous
  Country: MX (occurrence: MX)
  Receive Date: 20180522
  Receipt Date: 20180531
  Transmission Date: 20180711
  Serious: Yes (Disabling, Other)
  Sender: FDA-Public Use
  Company Number: MX-PFIZER INC-2018206670

PATIENT
  Age: 72 Year
  Sex: Female
  Weight: 80.5 kg

DRUGS (4)
  1. METFORMINE [Concomitant]
     Active Substance: METFORMIN HYDROCHLORIDE
     Indication: DIABETES MELLITUS
     Dosage: 500 MG, 2X/DAY
     Route: 048
  2. ALOPURINOL [Concomitant]
     Active Substance: ALLOPURINOL
     Indication: HYPERURICAEMIA
     Dosage: 300 MG, 1X/DAY
     Route: 048
  3. GLIBENCLAMIDE [Concomitant]
     Active Substance: GLYBURIDE
     Indication: DIABETES MELLITUS
     Dosage: 2.5 MG, 2X/WEEK
     Route: 048
  4. SUTENT [Suspect]
     Active Substance: SUNITINIB MALATE
     Indication: GASTROINTESTINAL STROMAL TUMOUR
     Dosage: 37.5 MG, 1X/DAY
     Route: 048
     Dates: start: 20180416, end: 20180504

REACTIONS (12)
  - Ocular hyperaemia [Recovering/Resolving]
  - Feeling abnormal [Unknown]
  - Toothache [Recovered/Resolved]
  - Depression [Unknown]
  - Cachexia [Unknown]
  - Lip discolouration [Unknown]
  - Burn oral cavity [Unknown]
  - Mucosal inflammation [Recovering/Resolving]
  - Fatigue [Recovering/Resolving]
  - Eating disorder [Unknown]
  - Tongue discolouration [Unknown]
  - Asthenia [Unknown]

NARRATIVE: CASE EVENT DATE: 20180421
